FAERS Safety Report 16475936 (Version 2)
Quarter: 2019Q3

REPORT INFORMATION
  Report Type: Spontaneous
  Country: US (occurrence: US)
  Receive Date: 20190625
  Receipt Date: 20190903
  Transmission Date: 20191004
  Serious: Yes (Life-Threatening, Hospitalization, Other)
  Sender: FDA-Public Use
  Company Number: US-ASTRAZENECA-2019SE91062

PATIENT
  Age: 607 Month
  Sex: Male
  Weight: 141.1 kg

DRUGS (20)
  1. HUMALOG [Concomitant]
     Active Substance: INSULIN LISPRO
     Indication: DIABETES MELLITUS
  2. DOXYCYCLINE. [Concomitant]
     Active Substance: DOXYCYCLINE
  3. METFORMIN [Concomitant]
     Active Substance: METFORMIN HYDROCHLORIDE
     Route: 048
  4. LANTUS [Concomitant]
     Active Substance: INSULIN GLARGINE
     Indication: DIABETES MELLITUS
  5. MELATONIN [Concomitant]
     Active Substance: MELATONIN
  6. PANTOPRAZOLE [Concomitant]
     Active Substance: PANTOPRAZOLE
  7. AMLODIPINE [Concomitant]
     Active Substance: AMLODIPINE BESYLATE
  8. METFORMIN [Concomitant]
     Active Substance: METFORMIN HYDROCHLORIDE
     Indication: DIABETES MELLITUS
  9. LYRICA [Concomitant]
     Active Substance: PREGABALIN
     Route: 048
  10. MELATONIN [Concomitant]
     Active Substance: MELATONIN
     Route: 048
  11. METOPROLOL TARTRATE. [Suspect]
     Active Substance: METOPROLOL TARTRATE
     Route: 048
  12. FENOFIBRATE. [Concomitant]
     Active Substance: FENOFIBRATE
     Route: 048
  13. ATORVASTATIN [Concomitant]
     Active Substance: ATORVASTATIN
     Route: 048
  14. FARXIGA [Suspect]
     Active Substance: DAPAGLIFLOZIN PROPANEDIOL
     Indication: TYPE 2 DIABETES MELLITUS
     Route: 048
     Dates: start: 201811, end: 201901
  15. BYDUREON [Suspect]
     Active Substance: EXENATIDE
     Route: 065
  16. METOPROLOL TARTRATE. [Suspect]
     Active Substance: METOPROLOL TARTRATE
     Route: 048
  17. ASPIRIN. [Concomitant]
     Active Substance: ASPIRIN
     Route: 048
  18. LISINOPRIL. [Suspect]
     Active Substance: LISINOPRIL
     Route: 048
  19. OXYCODONE [Concomitant]
     Active Substance: OXYCODONE
     Route: 048
  20. IBUPROFEN. [Concomitant]
     Active Substance: IBUPROFEN
     Dosage: 800.0MG AS REQUIRED
     Route: 048

REACTIONS (12)
  - Obesity [Unknown]
  - Essential hypertension [Unknown]
  - Injection site reaction [Unknown]
  - Overweight [Not Recovered/Not Resolved]
  - Glycosylated haemoglobin increased [Not Recovered/Not Resolved]
  - Arthralgia [Unknown]
  - Fournier^s gangrene [Recovering/Resolving]
  - Weight increased [Unknown]
  - Diabetic neuropathy [Unknown]
  - Type V hyperlipidaemia [Unknown]
  - Diabetes mellitus inadequate control [Unknown]
  - Infection [Not Recovered/Not Resolved]

NARRATIVE: CASE EVENT DATE: 201905
